FAERS Safety Report 12389908 (Version 1)
Quarter: 2016Q2

REPORT INFORMATION
  Report Type: Spontaneous
  Country: US (occurrence: US)
  Receive Date: 20160520
  Receipt Date: 20160520
  Transmission Date: 20160815
  Serious: No
  Sender: FDA-Public Use
  Company Number: US-MDT-ADR-2016-00229

PATIENT
  Age: 66 Year
  Sex: Male

DRUGS (8)
  1. BACLOFEN. [Suspect]
     Active Substance: BACLOFEN
     Route: 037
  2. BOTOX [Suspect]
     Active Substance: ONABOTULINUMTOXINA
  3. ATORVASTATIN [Suspect]
     Active Substance: ATORVASTATIN
  4. BACLOFEN. [Suspect]
     Active Substance: BACLOFEN
  5. METHENAMINE [Suspect]
     Active Substance: METHENAMINE
  6. DIAZEPAM. [Suspect]
     Active Substance: DIAZEPAM
  7. SYNTHROID [Suspect]
     Active Substance: LEVOTHYROXINE SODIUM
  8. NADOLOL. [Suspect]
     Active Substance: NADOLOL

REACTIONS (1)
  - Nephrolithiasis [Unknown]

NARRATIVE: CASE EVENT DATE: 2014
